FAERS Safety Report 6022622-7 (Version None)
Quarter: 2008Q4

REPORT INFORMATION
  Report Type: 
  Country: None (occurrence: None)
  Receive Date: 20081221
  Receipt Date: 20081221
  Transmission Date: 20090506
  Serious: Yes (Hospitalization)
  Sender: FDA-Public Use
  Company Number: None

PATIENT
  Age: 84 Year
  Sex: Male

DRUGS (6)
  1. PEMETREXED [Suspect]
     Indication: PLEURAL MESOTHELIOMA MALIGNANT
     Dosage: 500 MG/SQM IV Q3W
     Route: 042
     Dates: start: 20081104, end: 20081125
  2. CISPLATIN [Suspect]
     Dosage: 75 MG/SQM IV Q3W
     Route: 042
     Dates: start: 20081104, end: 20081125
  3. DOCUSATE SODIUM (COLACE) [Concomitant]
  4. LOPRESSOR [Concomitant]
  5. OXYCODONE [Concomitant]
  6. ALBUTEROL [Concomitant]

REACTIONS (6)
  - ANAEMIA [None]
  - CARDIAC FAILURE CONGESTIVE [None]
  - LOBAR PNEUMONIA [None]
  - LUNG DISORDER [None]
  - NEUTROPENIA [None]
  - THROMBOCYTOPENIA [None]
